FAERS Safety Report 17656296 (Version 1)
Quarter: 2020Q2

REPORT INFORMATION
  Report Type: Spontaneous
  Country: GB (occurrence: GB)
  Receive Date: 20200410
  Receipt Date: 20200410
  Transmission Date: 20200713
  Serious: Yes (Hospitalization)
  Sender: FDA-Public Use
  Company Number: GB-ASTRAZENECA-2020SE46278

PATIENT
  Age: 50 Year
  Sex: Female

DRUGS (6)
  1. TRESIBA [Concomitant]
     Active Substance: INSULIN DEGLUDEC
  2. ACETYLSALICYLIC ACID [Concomitant]
     Active Substance: ASPIRIN
  3. DAPAGLIFLOZIN. [Suspect]
     Active Substance: DAPAGLIFLOZIN
     Route: 048
  4. FLUOXETINE [Concomitant]
     Active Substance: FLUOXETINE HYDROCHLORIDE
  5. SIMVASTATIN. [Concomitant]
     Active Substance: SIMVASTATIN
  6. LISINOPRIL. [Concomitant]
     Active Substance: LISINOPRIL

REACTIONS (1)
  - Diabetic ketosis [Recovered/Resolved]

NARRATIVE: CASE EVENT DATE: 20200225
